FAERS Safety Report 20881581 (Version 2)
Quarter: 2022Q2

REPORT INFORMATION
  Report Type: Spontaneous
  Country: IN (occurrence: IN)
  Receive Date: 20220527
  Receipt Date: 20220624
  Transmission Date: 20220721
  Serious: Yes (Other)
  Sender: FDA-Public Use
  Company Number: IN-SUN PHARMACEUTICAL INDUSTRIES LTD-2022R1-337871

PATIENT
  Age: 76 Year
  Sex: Male

DRUGS (1)
  1. XALATAN [Suspect]
     Active Substance: LATANOPROST
     Indication: Open angle glaucoma
     Dosage: 0.005 PERCENT, DAILY
     Route: 065

REACTIONS (2)
  - Ophthalmic herpes simplex [Recovered/Resolved]
  - Corneal endotheliitis [Recovered/Resolved]
